FAERS Safety Report 20363686 (Version 1)
Quarter: 2022Q1

REPORT INFORMATION
  Report Type: Spontaneous
  Country: US (occurrence: US)
  Receive Date: 20220121
  Receipt Date: 20220121
  Transmission Date: 20220424
  Serious: Yes (Hospitalization)
  Sender: FDA-Public Use
  Company Number: US-TEVA-2022-US-2000442

PATIENT
  Age: 79 Year
  Sex: Male
  Weight: 55.3 kg

DRUGS (4)
  1. LEUCOVORIN [Suspect]
     Active Substance: LEUCOVORIN
     Indication: Gastric cancer stage IV
     Route: 042
  2. FLUOROURACIL [Suspect]
     Active Substance: FLUOROURACIL
     Indication: Gastric cancer stage IV
     Route: 042
  3. IRINOTECAN HYDROCHLORIDE [Suspect]
     Active Substance: IRINOTECAN HYDROCHLORIDE
     Indication: Gastric cancer stage IV
     Route: 042
  4. TALZENNA [Suspect]
     Active Substance: TALAZOPARIB TOSYLATE
     Dosage: DAILY
     Route: 048

REACTIONS (1)
  - Febrile neutropenia [Unknown]
